FAERS Safety Report 6389136-6 (Version None)
Quarter: 2009Q4

REPORT INFORMATION
  Report Type: 
  Country: None (occurrence: None)
  Receive Date: 20091006
  Receipt Date: 20070919
  Transmission Date: 20100525
  Serious: Yes (Hospitalization, Other)
  Sender: FDA-Public Use
  Company Number: US-ASTRAZENECA-2007UW10889

PATIENT
  Age: 35 Year
  Sex: Male
  Weight: 104.3 kg

DRUGS (30)
  1. SEROQUEL [Suspect]
     Dosage: 600 MG DURING THE DAY AND 400 MG IN THE EVENING
     Route: 048
     Dates: start: 20000306
  2. SEROQUEL [Suspect]
     Route: 048
     Dates: start: 20031008, end: 20070101
  3. ZYPREXA [Concomitant]
     Dosage: 10 - 30 MG
     Dates: start: 20010505
  4. ZYPREXA [Concomitant]
     Dates: start: 20030420, end: 20030517
  5. RISPERDAL [Concomitant]
     Dates: start: 20030420, end: 20030610
  6. GEODON [Concomitant]
     Dates: start: 20070101
  7. STELAZINE [Concomitant]
  8. THORAZINE [Concomitant]
  9. TRILAFON [Concomitant]
  10. HYDROXYZINE PAMOATE [Concomitant]
  11. HALDOL [Concomitant]
     Dosage: 5 - 100 MG
     Dates: start: 20020125
  12. DEPAKOTE [Concomitant]
     Dosage: 500 - 1500 MG
     Dates: start: 19991020
  13. REMERON [Concomitant]
     Dosage: 15 - 60 MG
     Dates: start: 20010505
  14. HUMULIN R [Concomitant]
     Dosage: 70/30, INSULIN 75/25, 20 UNITS IN MORNING AND TWO TIMES A DAY IN THE EVENING
     Dates: start: 20010101
  15. ATIVAN [Concomitant]
     Dates: start: 20020125
  16. PARLODEL [Concomitant]
     Indication: DRUG DEPENDENCE
     Dosage: 2.5 MG AT NIGHT AND 1.25 AS NEEDED
     Dates: start: 20020125
  17. PARLODEL [Concomitant]
     Indication: AGITATION
     Dosage: 2.5 MG AT NIGHT AND 1.25 AS NEEDED
     Dates: start: 20020125
  18. RESTORIL [Concomitant]
     Dates: start: 20020125
  19. AVANDIA [Concomitant]
     Dates: start: 20020125
  20. GLUCOTROL XL [Concomitant]
     Dates: start: 20020125
  21. TRAZODONE [Concomitant]
     Indication: SLEEP DISORDER
     Dosage: 100 - 300 MG
     Dates: start: 20070101
  22. LIPITOR [Concomitant]
     Route: 048
     Dates: start: 20070101
  23. ZOLOFT [Concomitant]
     Dosage: 50 MG HALF TABLET IN THE MORNING
     Route: 048
     Dates: start: 20070101
  24. NOVOLIN [Concomitant]
     Dosage: 70/30 36 UNITS IN AM AND 34 UNITS IN PM
     Dates: start: 20041108
  25. ASPIRIN [Concomitant]
     Dates: start: 20070101
  26. NOVOLIN N [Concomitant]
     Dosage: 10 UNITS DAILY IN THE MORNING, 15 UNITS AT 4 PM
     Dates: start: 20041108
  27. AMBIEN [Concomitant]
     Dates: start: 20010507
  28. NEURONTIN [Concomitant]
     Dosage: 300 - 900 MG
     Dates: start: 20041108
  29. LAMICTAL [Concomitant]
     Dates: start: 20041108
  30. LORTAB [Concomitant]
     Dosage: 7.5 MG ONE 4-6 HOURLY AS NEEDED
     Route: 048
     Dates: start: 20021129

REACTIONS (9)
  - ALCOHOLIC PANCREATITIS [None]
  - BLOOD CHOLESTEROL INCREASED [None]
  - DIABETES MELLITUS [None]
  - DIABETES MELLITUS INADEQUATE CONTROL [None]
  - DIABETIC KETOACIDOSIS [None]
  - NEUROPATHY PERIPHERAL [None]
  - PANCREATITIS [None]
  - PANCREATITIS CHRONIC [None]
  - TYPE 1 DIABETES MELLITUS [None]
